FAERS Safety Report 11262988 (Version 1)
Quarter: 2015Q3

REPORT INFORMATION
  Report Type: Spontaneous
  Country: CA (occurrence: CA)
  Receive Date: 20150710
  Receipt Date: 20150710
  Transmission Date: 20151125
  Serious: Yes (Death)
  Sender: FDA-Public Use
  Company Number: CA-HOSPIRA-2784901

PATIENT
  Age: 51 Year
  Sex: Male

DRUGS (2)
  1. ENBREL [Suspect]
     Active Substance: ETANERCEPT
     Indication: PSORIATIC ARTHROPATHY
  2. METHOTREXATE [Suspect]
     Active Substance: METHOTREXATE
     Indication: PRODUCT USED FOR UNKNOWN INDICATION
     Dosage: NOT REPORTED
     Route: 065

REACTIONS (7)
  - Endocarditis [Fatal]
  - Arthralgia [Fatal]
  - Multi-organ failure [Fatal]
  - Adverse drug reaction [Fatal]
  - Toxicity to various agents [Fatal]
  - Death [Fatal]
  - Malaise [Fatal]
